FAERS Safety Report 5823311-1 (Version None)
Quarter: 2008Q3

REPORT INFORMATION
  Report Type: 
  Country: None (occurrence: None)
  Receive Date: 20080725
  Receipt Date: 20070605
  Transmission Date: 20090109
  Serious: No
  Sender: FDA-Public Use
  Company Number: US-AMGEN-KDL228068

PATIENT
  Sex: Female

DRUGS (12)
  1. PROCRIT [Suspect]
     Indication: ANAEMIA
     Dates: start: 20060101
  2. COLACE [Concomitant]
  3. SYNTHROID [Concomitant]
  4. DIGOXIN [Concomitant]
  5. FOLIC ACID [Concomitant]
  6. PRILOSEC [Concomitant]
  7. VITAMIN B-12 [Concomitant]
  8. FENTANYL [Concomitant]
     Route: 062
  9. LASIX [Concomitant]
  10. K-DUR [Concomitant]
  11. LISINOPRIL [Concomitant]
  12. MIRALAX [Concomitant]

REACTIONS (3)
  - GLOSSITIS [None]
  - MUCOSAL INFLAMMATION [None]
  - ORAL DISCOMFORT [None]
